FAERS Safety Report 6589381-0 (Version None)
Quarter: 2010Q1

REPORT INFORMATION
  Report Type: 
  Country: None (occurrence: None)
  Receive Date: 20100218
  Receipt Date: 20100118
  Transmission Date: 20100710
  Serious: No
  Sender: FDA-Public Use
  Company Number: US-BAYER-201010987BCC

PATIENT
  Age: 74 Year
  Sex: Male
  Weight: 100 kg

DRUGS (13)
  1. ALEVE (CAPLET) [Suspect]
     Indication: ARTHRALGIA
     Dosage: UNIT DOSE: 220 MG
     Route: 048
     Dates: start: 20100104, end: 20100104
  2. ALEVE (CAPLET) [Suspect]
     Dosage: TOTAL DAILY DOSE: 220 MG  UNIT DOSE: 220 MG
     Route: 048
     Dates: start: 20100105
  3. METFORMIN HCL [Concomitant]
     Route: 065
  4. HIGH BLOOD PRESSURE MEDICATION [Concomitant]
     Route: 065
  5. METOPROLOL TARTRATE [Concomitant]
     Route: 065
  6. RANITIDINE [Concomitant]
     Route: 065
  7. GLIPIZIDE [Concomitant]
     Route: 065
  8. ISOSORB [Concomitant]
     Route: 065
  9. AMLODIPINE [Concomitant]
     Route: 065
  10. SIMVASTATIN [Concomitant]
     Route: 065
  11. ACTOS [Concomitant]
     Route: 065
  12. LIS/HCTZ [Concomitant]
  13. PLAVIX [Concomitant]
     Route: 065

REACTIONS (1)
  - ARTHRALGIA [None]
